FAERS Safety Report 6195019-7 (Version None)
Quarter: 2009Q2

REPORT INFORMATION
  Report Type: 
  Country: None (occurrence: None)
  Receive Date: 20090519
  Receipt Date: 20090512
  Transmission Date: 20091009
  Serious: Yes (Life-Threatening, Hospitalization)
  Sender: FDA-Public Use
  Company Number: B0567529A

PATIENT
  Sex: Female

DRUGS (1)
  1. WELLBUTRIN SR [Suspect]
     Dosage: 300MG PER DAY
     Route: 048
     Dates: start: 20081124, end: 20090202

REACTIONS (3)
  - FALL [None]
  - SUICIDE ATTEMPT [None]
  - VERTIGO [None]
